FAERS Safety Report 10389350 (Version 2)
Quarter: 2014Q3

REPORT INFORMATION
  Report Type: Spontaneous
  Country: US (occurrence: US)
  Receive Date: 20140818
  Receipt Date: 20140818
  Transmission Date: 20150326
  Serious: No
  Sender: FDA-Public Use
  Company Number: US-009507513-1405USA013389

PATIENT
  Age: 50 Year
  Sex: Male
  Weight: 69.84 kg

DRUGS (1)
  1. PEGINTRON [Suspect]
     Active Substance: PEGINTERFERON ALFA-2B
     Indication: HEPATITIS C
     Dosage: 96 MCG/ONCE WEEKLY
     Route: 058
     Dates: start: 20140310, end: 20140622

REACTIONS (5)
  - Red cell distribution width increased [Unknown]
  - Epidermal growth factor receptor increased [Unknown]
  - Liver disorder [Unknown]
  - Drug dose omission [Unknown]
  - Depression [Recovered/Resolved]

NARRATIVE: CASE EVENT DATE: 2014
